FAERS Safety Report 5788637-9 (Version None)
Quarter: 2008Q2

REPORT INFORMATION
  Report Type: 
  Country: None (occurrence: None)
  Receive Date: 20080626
  Receipt Date: 20080521
  Transmission Date: 20081010
  Serious: No
  Sender: FDA-Public Use
  Company Number: US-BAYER-200823940NA

PATIENT
  Age: 62 Year
  Sex: Female
  Weight: 57 kg

DRUGS (2)
  1. MENOSTAR [Suspect]
     Indication: MENOPAUSAL SYMPTOMS
     Route: 062
  2. DIAZEPAM [Concomitant]
     Indication: MUSCLE SPASMS
     Route: 048

REACTIONS (2)
  - HOT FLUSH [None]
  - NIGHT SWEATS [None]
